FAERS Safety Report 5147227-1 (Version None)
Quarter: 2006Q4

REPORT INFORMATION
  Report Type: 
  Country: None (occurrence: None)
  Receive Date: 20061102
  Receipt Date: 20061020
  Transmission Date: 20070319
  Serious: Yes (Hospitalization)
  Sender: FDA-Public Use
  Company Number: 2005BI017462

PATIENT
  Age: 61 Year
  Sex: Female

DRUGS (2)
  1. AVONEX [Suspect]
     Indication: MULTIPLE SCLEROSIS
     Dosage: 30 UG;QW;IM
     Route: 030
     Dates: start: 19971018, end: 20030801
  2. AVONEX [Suspect]
     Indication: MULTIPLE SCLEROSIS
     Dosage: IM
     Route: 030
     Dates: start: 20030801

REACTIONS (9)
  - ARTERIOSPASM CORONARY [None]
  - BRONCHITIS [None]
  - CORONARY ARTERY THROMBOSIS [None]
  - DEHYDRATION [None]
  - HYPOTENSION [None]
  - MUSCULAR WEAKNESS [None]
  - MYOCARDIAL INFARCTION [None]
  - PNEUMONITIS [None]
  - URINARY TRACT INFECTION [None]
